FAERS Safety Report 22940642 (Version 2)
Quarter: 2023Q4

REPORT INFORMATION
  Report Type: Other
  Country: US (occurrence: None)
  Receive Date: 20230913
  Receipt Date: 20231221
  Transmission Date: 20240110
  Serious: Yes (Hospitalization)
  Sender: FDA-Public Use
  Company Number: US-ROCHE-3419603

PATIENT
  Age: 6 Year
  Sex: Female
  Weight: 15.9 kg

DRUGS (11)
  1. EVRYSDI [Suspect]
     Active Substance: RISDIPLAM
     Indication: Spinal muscular atrophy
     Dosage: 0.75 MG/ML, GASTRIC TUBE.
     Route: 048
     Dates: start: 20210421
  2. EVRYSDI [Suspect]
     Active Substance: RISDIPLAM
  3. TYLENOL [Concomitant]
     Active Substance: ACETAMINOPHEN
  4. IBUPROFEN [Concomitant]
     Active Substance: IBUPROFEN
     Route: 048
  5. LORATADINE [Concomitant]
     Active Substance: LORATADINE
     Route: 048
  6. NUSINERSEN [Concomitant]
     Active Substance: NUSINERSEN
     Route: 048
  7. ONDANSETRON [Concomitant]
     Active Substance: ONDANSETRON
     Route: 048
  8. POLYETHYLENE GLYCOL [Concomitant]
     Active Substance: POLYETHYLENE GLYCOL
  9. TRIAMCINOLONE [Concomitant]
     Active Substance: TRIAMCINOLONE
  10. ALBUTEROL SULFATE [Concomitant]
     Active Substance: ALBUTEROL SULFATE
  11. FLUTICASONE PROPIONATE [Concomitant]
     Active Substance: FLUTICASONE PROPIONATE

REACTIONS (4)
  - Craniofacial fracture [Recovering/Resolving]
  - Skin abrasion [Recovering/Resolving]
  - Pain [Unknown]
  - Swelling face [Unknown]
